FAERS Safety Report 9509758 (Version 1)
Quarter: 2013Q3

REPORT INFORMATION
  Report Type: Report from Study
  Country: US (occurrence: GB)
  Receive Date: 20130909
  Receipt Date: 20130909
  Transmission Date: 20140515
  Serious: Yes (Other)
  Sender: FDA-Public Use
  Company Number: US-ABBOTT-13P-163-1143142-00

PATIENT
  Age: 35 Year
  Sex: Female

DRUGS (4)
  1. RITONAVIR [Suspect]
     Indication: ANTIRETROVIRAL THERAPY
     Route: 048
     Dates: start: 20090324
  2. COMBIVIR [Suspect]
     Indication: ANTIRETROVIRAL THERAPY
     Dosage: 2 TAB/CAPS
     Route: 048
     Dates: start: 20090324
  3. INTELENCE [Suspect]
     Indication: ANTIRETROVIRAL THERAPY
     Route: 048
     Dates: start: 20090324
  4. PREZISTA [Suspect]
     Indication: ANTIRETROVIRAL THERAPY
     Dosage: 2 TAB/CAPS
     Route: 048
     Dates: start: 20090324

REACTIONS (1)
  - Abortion spontaneous [Unknown]
